FAERS Safety Report 5353470-9 (Version None)
Quarter: 2007Q2

REPORT INFORMATION
  Report Type: 
  Country: None (occurrence: None)
  Receive Date: 20070612
  Receipt Date: 20070605
  Transmission Date: 20071010
  Serious: Yes (Other)
  Sender: FDA-Public Use
  Company Number: PHEH2007US08345

PATIENT
  Age: 66 Year
  Sex: Female

DRUGS (4)
  1. ENABLEX [Suspect]
     Indication: MICTURITION URGENCY
     Dosage: 7.5 MG, QD
     Route: 048
     Dates: start: 20070523, end: 20070604
  2. SYNTHROID [Concomitant]
  3. ATACAND [Concomitant]
  4. PREMARIN [Concomitant]

REACTIONS (2)
  - BLINDNESS [None]
  - VISION BLURRED [None]
